FAERS Safety Report 4912535-3 (Version None)
Quarter: 2006Q1

REPORT INFORMATION
  Report Type: 
  Country: None (occurrence: None)
  Receive Date: 20060215
  Receipt Date: 20050620
  Transmission Date: 20060701
  Serious: No
  Sender: FDA-Public Use
  Company Number: US-GLAXOSMITHKLINE-A0563382A

PATIENT
  Age: 72 Year
  Sex: Male

DRUGS (6)
  1. VALTREX [Suspect]
     Indication: HERPES ZOSTER
     Dosage: 1G THREE TIMES PER DAY
     Route: 048
     Dates: start: 20050613, end: 20050619
  2. ZOCOR [Concomitant]
  3. NIASPAN [Concomitant]
  4. PROSCAR [Concomitant]
  5. BENEFIBER [Concomitant]
  6. NEOMYCIN [Concomitant]
     Route: 047

REACTIONS (4)
  - AGEUSIA [None]
  - ANOREXIA [None]
  - DIZZINESS [None]
  - NAUSEA [None]
